FAERS Safety Report 8415502-0 (Version None)
Quarter: 2012Q2

REPORT INFORMATION
  Report Type: 
  Country: None (occurrence: None)
  Receive Date: 20120606
  Receipt Date: 20120604
  Transmission Date: 20120825
  Serious: Yes (Other)
  Sender: FDA-Public Use
  Company Number: PHEH2009US11009

PATIENT
  Sex: Female
  Weight: 90 kg

DRUGS (24)
  1. HYDROMORPHONE HYDROCHLORIDE [Concomitant]
     Dosage: 2 MG, UNK
  2. METOPROLOL TARTRATE [Concomitant]
  3. ONDANSETRON [Concomitant]
  4. FOSAMAX [Suspect]
  5. ASPIRIN [Concomitant]
  6. DEXAMETHASONE [Concomitant]
  7. DOCUSATE [Concomitant]
  8. AMOXICILLIN [Concomitant]
  9. HEPARIN [Concomitant]
  10. OXYCODONE HYDROCHLORIDE [Concomitant]
  11. CLINDAMYCIN [Concomitant]
  12. TETRACYCLINE [Concomitant]
  13. CHEMOTHERAPEUTICS [Concomitant]
  14. AVASTIN [Concomitant]
  15. OXYCONTIN [Concomitant]
  16. LABETALOL HCL [Concomitant]
  17. CHLORHEXIDINE GLUCONATE [Concomitant]
  18. PREVACID [Concomitant]
  19. IMODIUM A-D [Concomitant]
  20. STEROIDS NOS [Concomitant]
  21. ZOMETA [Suspect]
     Dosage: 4 MG, QMO
  22. METRONIDAZOLE [Concomitant]
  23. COUMADIN [Concomitant]
  24. XELODA [Concomitant]

REACTIONS (80)
  - ORAL PAIN [None]
  - OROANTRAL FISTULA [None]
  - METASTASES TO LIVER [None]
  - DIVERTICULUM [None]
  - OSTEOSCLEROSIS [None]
  - MEMORY IMPAIRMENT [None]
  - CEREBROVASCULAR ACCIDENT [None]
  - LUNG NEOPLASM [None]
  - INTERVERTEBRAL DISC DEGENERATION [None]
  - HEADACHE [None]
  - DYSPEPSIA [None]
  - INJURY [None]
  - EMOTIONAL DISTRESS [None]
  - OTITIS EXTERNA [None]
  - CEREBRAL SMALL VESSEL ISCHAEMIC DISEASE [None]
  - BACK PAIN [None]
  - HYPOAESTHESIA [None]
  - JOINT SWELLING [None]
  - STOMATITIS [None]
  - HYPERKALAEMIA [None]
  - ANHEDONIA [None]
  - EXPOSED BONE IN JAW [None]
  - IMMUNOSUPPRESSION [None]
  - TRANSIENT ISCHAEMIC ATTACK [None]
  - CARDIOMEGALY [None]
  - PARAESTHESIA [None]
  - EMBOLISM VENOUS [None]
  - OSTEONECROSIS OF JAW [None]
  - INFECTION [None]
  - NEOPLASM PROGRESSION [None]
  - METASTASES TO CENTRAL NERVOUS SYSTEM [None]
  - CHOLELITHIASIS [None]
  - UTERINE LEIOMYOMA [None]
  - ARTHRITIS [None]
  - SINUSITIS [None]
  - ABDOMINAL PAIN [None]
  - CONTUSION [None]
  - SKIN ULCER [None]
  - GASTROOESOPHAGEAL REFLUX DISEASE [None]
  - PERIPHERAL EMBOLISM [None]
  - PULMONARY EMBOLISM [None]
  - ANXIETY [None]
  - TOOTHACHE [None]
  - METASTASES TO BONE [None]
  - CHOLECYSTITIS CHRONIC [None]
  - DEEP VEIN THROMBOSIS [None]
  - LYMPHOEDEMA [None]
  - OVERDOSE [None]
  - TOOTH DEPOSIT [None]
  - ASTHMA [None]
  - DIPLOPIA [None]
  - HEPATIC STEATOSIS [None]
  - DYSTROPHIC CALCIFICATION [None]
  - CONFUSIONAL STATE [None]
  - DYSPNOEA [None]
  - MUCOSAL INFLAMMATION [None]
  - DISABILITY [None]
  - PAIN [None]
  - ORAL DISORDER [None]
  - PAIN IN JAW [None]
  - PERIODONTITIS [None]
  - BONE LESION [None]
  - SPINAL FRACTURE [None]
  - METASTASES TO SPINE [None]
  - KERATOSIS OBTURANS [None]
  - ISCHAEMIC STROKE [None]
  - DEAFNESS [None]
  - POST THROMBOTIC SYNDROME [None]
  - CHEST PAIN [None]
  - POLLAKIURIA [None]
  - DEFORMITY [None]
  - OSTEORADIONECROSIS [None]
  - GINGIVITIS [None]
  - BRONCHITIS [None]
  - PATHOLOGICAL FRACTURE [None]
  - VASCULAR CALCIFICATION [None]
  - GAIT DISTURBANCE [None]
  - OSTEOARTHRITIS [None]
  - HYPOXIA [None]
  - FATIGUE [None]
